FAERS Safety Report 10053022 (Version 1)
Quarter: 2014Q2

REPORT INFORMATION
  Report Type: Report from Study
  Country: US (occurrence: US)
  Receive Date: 20140402
  Receipt Date: 20140402
  Transmission Date: 20141212
  Serious: Yes (Life-Threatening, Hospitalization)
  Sender: FDA-Public Use
  Company Number: US-009507513-1403USA010011

PATIENT
  Age: 50 Year
  Sex: Male

DRUGS (4)
  1. TEMODAR [Suspect]
     Indication: GLIOBLASTOMA MULTIFORME
     Dosage: DOSE OF 930 MG ON 23-NOV-2013, TOTAL DOSE OF 930 MG ON 24-NOV-2013 AND 1085 MG ON 25-NOV-2013
     Route: 048
     Dates: start: 20131123
  2. DECADRON [Suspect]
     Dosage: 4 MG BID IN MORNING AND NOON AND 2 MG IN EVENING
  3. DECADRON [Suspect]
     Dosage: UNK
  4. DASATINIB [Suspect]
     Indication: GLIOBLASTOMA MULTIFORME
     Dosage: 950 MG ON 19-NOV-2013, TOTAL DOSE OF 900 MG ON 24-NOV-2013 AND 1050 MG ON 25-NOV-2013
     Route: 048
     Dates: start: 20131119

REACTIONS (2)
  - Hyperglycaemia [Recovering/Resolving]
  - Cellulitis [Unknown]
